FAERS Safety Report 10647714 (Version 2)
Quarter: 2014Q4

REPORT INFORMATION
  Report Type: Spontaneous
  Country: JP (occurrence: JP)
  Receive Date: 20141212
  Receipt Date: 20141215
  Transmission Date: 20150529
  Serious: Yes (Death, Hospitalization, Other)
  Sender: FDA-Public Use
  Company Number: JP-ROCHE-1501843

PATIENT
  Age: 59 Year
  Sex: Female
  Weight: 90 kg

DRUGS (6)
  1. PEGASYS [Suspect]
     Active Substance: PEGINTERFERON ALFA-2A
     Indication: CHRONIC HEPATITIS C
     Route: 058
     Dates: start: 20140203, end: 20140404
  2. GLUFAST [Concomitant]
     Active Substance: MITIGLINIDE
     Route: 048
  3. SOVRIAD [Suspect]
     Active Substance: SIMEPREVIR
     Indication: CHRONIC HEPATITIS C
     Route: 048
     Dates: start: 20140203, end: 20140405
  4. COPEGUS [Suspect]
     Active Substance: RIBAVIRIN
     Route: 048
     Dates: start: 20140307, end: 20140413
  5. PEGASYS [Suspect]
     Active Substance: PEGINTERFERON ALFA-2A
     Route: 058
     Dates: start: 20140405, end: 20140413
  6. COPEGUS [Suspect]
     Active Substance: RIBAVIRIN
     Indication: CHRONIC HEPATITIS C
     Route: 048
     Dates: start: 20140203, end: 20140306

REACTIONS (10)
  - Disseminated intravascular coagulation [Fatal]
  - Anaemia [Not Recovered/Not Resolved]
  - Hepatic failure [Fatal]
  - Multi-organ failure [Fatal]
  - Sepsis [Fatal]
  - Hepatic encephalopathy [Unknown]
  - Drug-induced liver injury [Not Recovered/Not Resolved]
  - Peritonitis bacterial [Fatal]
  - Hepatic cirrhosis [Not Recovered/Not Resolved]
  - Renal disorder [Unknown]

NARRATIVE: CASE EVENT DATE: 20140307
